FAERS Safety Report 5106668-9 (Version None)
Quarter: 2006Q3

REPORT INFORMATION
  Report Type: 
  Country: None (occurrence: None)
  Receive Date: 20060731
  Receipt Date: 20060629
  Transmission Date: 20061208
  Serious: Yes (Death)
  Sender: FDA-Public Use
  Company Number: US-JNJFOC-20050700129

PATIENT
  Age: 85 Year
  Sex: Male
  Weight: 58.9676 kg

DRUGS (6)
  1. RISPERDAL [Suspect]
     Indication: DRUG USE FOR UNKNOWN INDICATION
     Dosage: 0.5 MG , 1 IN 1 DAY, ORAL
     Route: 048
     Dates: start: 20040816, end: 20050627
  2. ATIVAN [Concomitant]
  3. LOPRESSOR [Concomitant]
  4. ISOSORBIDE () ISOSORBIDE [Concomitant]
  5. HYDROCHLOROTHIAZIDE [Concomitant]
  6. SPIRIVA (ANTICHOLINERGIC AGENTS) [Concomitant]

REACTIONS (1)
  - SUDDEN DEATH [None]
